FAERS Safety Report 13107662 (Version 2)
Quarter: 2017Q1

REPORT INFORMATION
  Report Type: Spontaneous
  Country: US (occurrence: US)
  Receive Date: 20170112
  Receipt Date: 20170123
  Transmission Date: 20170428
  Serious: Yes (Hospitalization)
  Sender: FDA-Public Use
  Company Number: US-HORIZON-RAV-0004-2017

PATIENT
  Age: 3 Year
  Sex: Male

DRUGS (5)
  1. RAVICTI [Suspect]
     Active Substance: GLYCEROL PHENYLBUTYRATE
     Indication: ORNITHINE TRANSCARBAMOYLASE DEFICIENCY
     Dosage: 3 ML TID, 9 ML DAILY ORALLY
     Dates: start: 20130828
  2. PRO-PHREE [Concomitant]
  3. CITRULLINE [Concomitant]
     Active Substance: CITRULLINE
  4. ANAMIX JR [Concomitant]
  5. SOLCARB [Concomitant]

REACTIONS (3)
  - Hyperammonaemia [Recovered/Resolved]
  - Nausea [Unknown]
  - Influenza like illness [Unknown]
